FAERS Safety Report 10692687 (Version 3)
Quarter: 2015Q1

REPORT INFORMATION
  Report Type: Spontaneous
  Country: CH (occurrence: CH)
  Receive Date: 20150106
  Receipt Date: 20150311
  Transmission Date: 20150720
  Serious: Yes (Other)
  Sender: FDA-Public Use
  Company Number: CH-TEVA-527122ISR

PATIENT
  Age: 37 Year
  Sex: Male
  Weight: 72 kg

DRUGS (2)
  1. ASS 100MG [Concomitant]
  2. ESCITALOPRAM [Suspect]
     Active Substance: ESCITALOPRAM OXALATE
     Route: 065
     Dates: start: 2014, end: 2014

REACTIONS (8)
  - Product substitution issue [Recovered/Resolved]
  - Decreased activity [Recovered/Resolved]
  - Drug effect decreased [Recovered/Resolved]
  - Malaise [Recovered/Resolved]
  - Fatigue [Recovered/Resolved]
  - Night sweats [Recovered/Resolved]
  - Sexual dysfunction [Recovered/Resolved]
  - Sedation [Recovered/Resolved]

NARRATIVE: CASE EVENT DATE: 201409
